FAERS Safety Report 5682890-8 (Version None)
Quarter: 2008Q1

REPORT INFORMATION
  Report Type: 
  Country: None (occurrence: None)
  Receive Date: 20080327
  Receipt Date: 20080324
  Transmission Date: 20080703
  Serious: Yes (Hospitalization)
  Sender: FDA-Public Use
  Company Number: DE-WYE-G01291408

PATIENT
  Sex: Female

DRUGS (4)
  1. TREVILOR [Suspect]
     Dosage: UNKNOWN NUMBER OF TABLETS (OVERDOSE AMOUNT 450 MG)
     Route: 048
     Dates: start: 20080321, end: 20080321
  2. SEROQUEL [Suspect]
     Dosage: UNKNOWN NUMBER OF TABLETS (OVERDOSE AMOUNT 900 MG)
     Route: 048
     Dates: start: 20080321, end: 20080321
  3. SUPRARENIN INJ [Suspect]
     Dosage: 100 ML (OVERDOSE AMOUNT UNKNOWN)
     Route: 065
     Dates: start: 20080321, end: 20080321
  4. DIAZEPAM [Suspect]
     Dosage: UNKNOWN NUMBER OF TABLETS (OVERDOSE AMOUNT 60 MG)
     Route: 048
     Dates: start: 20080321, end: 20080321

REACTIONS (6)
  - AGITATION [None]
  - INTENTIONAL OVERDOSE [None]
  - MYDRIASIS [None]
  - PULMONARY OEDEMA [None]
  - RESPIRATORY FAILURE [None]
  - SUICIDE ATTEMPT [None]
